FAERS Safety Report 8160083 (Version 7)
Quarter: 2012Q4

REPORT INFORMATION
  Report Type: 
  Country: US (occurrence: US)
  Receive Date: 20110928
  Receipt Date: 20121219
  Transmission Date: 20130627
  Serious: Yes (Hospitalization, Other)
  Sender: FDA-Public Use
  Company Number: US-BAYER-2011-088312

PATIENT
  Age: 25 Year
  Sex: Female
  Weight: 95.24 kg

DRUGS (19)
  1. YAZ [Suspect]
     Indication: PREMENSTRUAL DYSPHORIC DISORDER
     Dosage: UNK
     Dates: start: 2006, end: 2008
  2. YAZ [Suspect]
     Indication: PREMENSTRUAL SYNDROME
  3. YAZ [Suspect]
     Indication: ACNE
  4. YAZ [Suspect]
     Indication: POLYCYSTIC OVARIES
  5. ALBERTROL [Concomitant]
     Indication: ASTHMA
     Dosage: UNK
  6. NORVASC [Concomitant]
     Indication: BLOOD PRESSURE HIGH
     Dosage: UNK
     Dates: start: 2006
  7. NORVASC [Concomitant]
     Indication: ANGINAL ATTACK
  8. DIURETICS [Concomitant]
     Dosage: UNK
  9. NSAID^S [Concomitant]
     Dosage: UNK
  10. METFORMIN HCL [Concomitant]
     Indication: DIABETES
     Dosage: UNK
     Dates: start: 2006
  11. SPIRONOLACTONE [Concomitant]
     Indication: FLUID RETENTION
     Dosage: UNK
     Dates: start: 2006
  12. NASACORT [Concomitant]
     Dosage: 2 sprays in each nostril daily
     Route: 045
  13. CLARITIN [Concomitant]
     Dosage: 10 mg,Daily
  14. GLUCOPHAGE [Concomitant]
     Dosage: 500 mg, Daily
  15. FISH OIL [Concomitant]
     Dosage: 1000 mg, Daily
  16. CALCIUM WITH VITAMIN D [Concomitant]
     Dosage: 600 mg, Daily
  17. MULTIVITAMIN [Concomitant]
     Dosage: UNK UNK, QD
  18. NYSTATIN [Concomitant]
     Dosage: UNK UNK, PRN
     Route: 061
  19. KETOCONAZOLE [Concomitant]
     Dosage: 2 %, 30 gms

REACTIONS (20)
  - Deep vein thrombosis [Recovered/Resolved]
  - Intracardiac thrombus [None]
  - Cholecystitis acute [None]
  - Cholecystitis [None]
  - Biliary sepsis [None]
  - Cardiac failure congestive [None]
  - Myocarditis [None]
  - Myocardial infarction [None]
  - Pulmonary infarction [None]
  - Pneumonia [None]
  - General physical health deterioration [Recovered/Resolved]
  - General physical health deterioration [Recovered/Resolved]
  - Emotional distress [None]
  - Anhedonia [None]
  - Pain [None]
  - Anxiety [None]
  - Fatigue [None]
  - Contusion [None]
  - Weight increased [None]
  - Fear of disease [None]
